FAERS Safety Report 24302317 (Version 1)
Quarter: 2024Q3

REPORT INFORMATION
  Report Type: Spontaneous
  Country: DE (occurrence: DE)
  Receive Date: 20240910
  Receipt Date: 20240910
  Transmission Date: 20241017
  Serious: Yes (Life-Threatening, Hospitalization, Other)
  Sender: SANDOZ
  Company Number: DE-HIKMA PHARMACEUTICALS-DE-H14001-24-08102

PATIENT
  Sex: Male

DRUGS (6)
  1. BRENTUXIMAB VEDOTIN [Suspect]
     Active Substance: BRENTUXIMAB VEDOTIN
     Indication: Hodgkin^s disease
     Dosage: 180 (UNITS WERE NOT PROVIDED)
     Route: 065
     Dates: start: 20200810
  2. CYCLOPHOSPHAMIDE [Suspect]
     Active Substance: CYCLOPHOSPHAMIDE
     Indication: Hodgkin^s disease
     Dosage: 2686 MILLIGRAM/SQ. METER
     Route: 065
     Dates: start: 20200811
  3. DECADRON (DEXAMETHASONE SODIUM PHOSPHATE) [Suspect]
     Active Substance: DEXAMETHASONE SODIUM PHOSPHATE
     Indication: Hodgkin^s disease
     Dosage: 160 (UNITS WERE NOT PROVIDED)
     Route: 065
     Dates: start: 20200811
  4. DOXORUBICIN [Suspect]
     Active Substance: DOXORUBICIN
     Indication: Hodgkin^s disease
     Dosage: 97.7 MILLIGRAM/SQ. METER
     Route: 065
     Dates: start: 20200811
  5. DACARBAZINE [Suspect]
     Active Substance: DACARBAZINE
     Indication: Hodgkin^s disease
     Dosage: 1221.1 MILLIGRAM/SQ. METER
     Route: 065
     Dates: start: 20200812
  6. ETOPOSIDE [Suspect]
     Active Substance: ETOPOSIDE
     Indication: Hodgkin^s disease
     Dosage: 915.9 MILLIGRAM/SQ. METER
     Route: 065
     Dates: start: 20200811

REACTIONS (2)
  - Leukopenia [Recovered/Resolved]
  - Atrial fibrillation [Recovered/Resolved]

NARRATIVE: CASE EVENT DATE: 20200817
